FAERS Safety Report 6179615-9 (Version None)
Quarter: 2009Q2

REPORT INFORMATION
  Report Type: 
  Country: None (occurrence: None)
  Receive Date: 20090505
  Receipt Date: 20090427
  Transmission Date: 20091009
  Serious: Yes (Hospitalization)
  Sender: FDA-Public Use
  Company Number: JP-MERCK-0904USA01707

PATIENT
  Age: 66 Year
  Sex: Female
  Weight: 40 kg

DRUGS (12)
  1. FOSAMAX [Suspect]
     Indication: OSTEOPOROSIS
     Route: 048
     Dates: start: 20081226, end: 20090108
  2. CLARITHROMYCIN [Concomitant]
     Route: 048
  3. MIYA BM [Concomitant]
     Route: 048
  4. ARTIST [Concomitant]
     Indication: ATRIAL FIBRILLATION
     Route: 048
  5. ARTIST [Concomitant]
     Indication: ANGINA PECTORIS
     Route: 048
  6. DIGOXIN [Concomitant]
     Route: 048
  7. WARFARIN POTASSIUM [Concomitant]
     Indication: EMBOLISM
     Route: 048
  8. BLOPRESS [Concomitant]
     Indication: HYPERTENSION
     Route: 048
  9. ALDACTONE [Concomitant]
     Route: 048
  10. ALTAT [Concomitant]
     Indication: GASTRITIS
     Route: 048
     Dates: start: 20081226, end: 20090108
  11. PREDONINE [Concomitant]
     Route: 065
     Dates: start: 20081226
  12. LUPRAC [Concomitant]
     Route: 048

REACTIONS (1)
  - HEPATIC FUNCTION ABNORMAL [None]
